FAERS Safety Report 4886829-4 (Version None)
Quarter: 2006Q1

REPORT INFORMATION
  Report Type: 
  Country: None (occurrence: None)
  Receive Date: 20060119
  Receipt Date: 20060119
  Transmission Date: 20060701
  Serious: Yes (Life-Threatening, Hospitalization)
  Sender: FDA-Public Use
  Company Number: None

PATIENT
  Age: 75 Year
  Sex: Female

DRUGS (11)
  1. VELCADE [Suspect]
     Indication: DIFFUSE LARGE B-CELL LYMPHOMA
     Dosage: 2.3 MG   TWICE WEEKLY   IV
     Route: 042
     Dates: start: 20060109, end: 20060115
  2. LEVAQUIN [Concomitant]
  3. FLAGYL [Concomitant]
  4. VANCOMYCIN [Concomitant]
  5. AZTREONAM [Concomitant]
  6. G-CSF [Concomitant]
  7. LEVOPHED [Concomitant]
  8. HYDROCORTISONE [Concomitant]
  9. AMIODARONE GTT [Concomitant]
  10. PREVACID [Concomitant]
  11. .. [Concomitant]

REACTIONS (2)
  - ILEUS [None]
  - PANCYTOPENIA [None]
